FAERS Safety Report 5690067-5 (Version None)
Quarter: 2008Q1

REPORT INFORMATION
  Report Type: 
  Country: None (occurrence: None)
  Receive Date: 20080331
  Receipt Date: 20080331
  Transmission Date: 20080703
  Serious: No
  Sender: FDA-Public Use
  Company Number: None

PATIENT
  Sex: Male
  Weight: 83.9154 kg

DRUGS (2)
  1. SINGULAIR [Suspect]
     Indication: ASTHMA
     Dosage: ONCE DAILY
     Dates: start: 20000601, end: 20010115
  2. SINGULAIR [Suspect]
     Indication: HYPERSENSITIVITY
     Dosage: ONCE DAILY
     Dates: start: 20000601, end: 20010115

REACTIONS (7)
  - ABNORMAL BEHAVIOUR [None]
  - BIPOLAR DISORDER [None]
  - DEPRESSION [None]
  - HEADACHE [None]
  - HYPERSOMNIA [None]
  - MANIA [None]
  - SUICIDAL IDEATION [None]
